FAERS Safety Report 6305035-X (Version None)
Quarter: 2009Q3

REPORT INFORMATION
  Report Type: 
  Country: None (occurrence: None)
  Receive Date: 20090811
  Receipt Date: 20090729
  Transmission Date: 20100115
  Serious: Yes (Death, Hospitalization)
  Sender: FDA-Public Use
  Company Number: JP-GENENTECH-285150

PATIENT
  Sex: Male

DRUGS (5)
  1. BEVACIZUMAB [Suspect]
     Indication: COLON CANCER METASTATIC
     Dosage: 5 MG/KG, QD
     Route: 041
     Dates: start: 20071001, end: 20090427
  2. IRINOTECAN HCL [Suspect]
     Indication: COLON CANCER METASTATIC
     Dosage: 160 MG/KG, Q2W
     Route: 041
     Dates: start: 20071001, end: 20071126
  3. FLUOROURACIL [Suspect]
     Indication: COLON CANCER METASTATIC
     Dosage: 525 MG, UNK
     Route: 042
     Dates: start: 20061218, end: 20090427
  4. ISOVORIN [Suspect]
     Indication: COLON CANCER METASTATIC
     Dosage: 250 MG, Q2W
     Route: 041
     Dates: start: 20071001, end: 20090427
  5. ELPLAT [Suspect]
     Indication: COLON CANCER METASTATIC
     Dosage: 130 MG, Q2W
     Route: 041
     Dates: start: 20080630, end: 20090427

REACTIONS (1)
  - INTERSTITIAL LUNG DISEASE [None]
